FAERS Safety Report 23767868 (Version 8)
Quarter: 2024Q3

REPORT INFORMATION
  Report Type: Spontaneous
  Country: PL (occurrence: PL)
  Receive Date: 20240422
  Receipt Date: 20240809
  Transmission Date: 20241016
  Serious: Yes (Hospitalization, Disabling, Other)
  Sender: AUROBINDO
  Company Number: PL-AUROBINDO-AUR-APL-2024-018508

PATIENT
  Age: 24 Year
  Sex: Male

DRUGS (28)
  1. ALPRAZOLAM [Suspect]
     Active Substance: ALPRAZOLAM
     Indication: Anxiety
     Dosage: 0.5 MILLIGRAM, AS NECESSARY
     Route: 065
  2. ESCITALOPRAM [Interacting]
     Active Substance: ESCITALOPRAM OXALATE
     Indication: Depression
     Dosage: 10 MILLIGRAM, ONCE A DAY
     Route: 065
  3. ESCITALOPRAM [Interacting]
     Active Substance: ESCITALOPRAM OXALATE
     Indication: Insomnia
  4. LEVOFLOXACIN [Interacting]
     Active Substance: LEVOFLOXACIN
     Indication: Depression
     Dosage: 1000 MILLIGRAM, ONCE A DAY(2 ? 500 MG)
     Route: 048
  5. LEVOFLOXACIN [Interacting]
     Active Substance: LEVOFLOXACIN
     Indication: Perineal pain
  6. LEVOFLOXACIN [Interacting]
     Active Substance: LEVOFLOXACIN
     Indication: Painful ejaculation
  7. PREGABALIN [Suspect]
     Active Substance: PREGABALIN
     Indication: Painful ejaculation
     Dosage: 25 MILLIGRAM, ONCE A DAY
     Route: 065
  8. SILDENAFIL [Suspect]
     Active Substance: SILDENAFIL
     Indication: Sexual dysfunction
     Dosage: 50 MILLIGRAM, ONCE A DAY (50 MG OF SILDENAFIL BEFORE INTERCOURSE)
     Route: 065
  9. SILDENAFIL [Suspect]
     Active Substance: SILDENAFIL
     Indication: Neuropathy peripheral
  10. SILDENAFIL [Suspect]
     Active Substance: SILDENAFIL
     Indication: Painful ejaculation
  11. TAMSULOSIN [Suspect]
     Active Substance: TAMSULOSIN
     Indication: Perineal pain
     Dosage: 0.4 MILLIGRAM, AT BED TIME
     Route: 042
  12. TAMSULOSIN [Suspect]
     Active Substance: TAMSULOSIN
     Indication: Painful ejaculation
  13. CIPROFLOXACIN [Interacting]
     Active Substance: CIPROFLOXACIN
     Indication: Painful ejaculation
     Dosage: 500 MILLIGRAM, TWO TIMES A DAY
     Route: 048
  14. DICLOFENAC [Suspect]
     Active Substance: DICLOFENAC
     Indication: Painful ejaculation
     Dosage: 50 MILLIGRAM, TWO TIMES A DAY
     Route: 065
  15. LIDOCAINE HYDROCHLORIDE [Suspect]
     Active Substance: LIDOCAINE HYDROCHLORIDE
     Indication: Pain
     Dosage: UNK
     Route: 042
  16. LIDOCAINE HYDROCHLORIDE [Suspect]
     Active Substance: LIDOCAINE HYDROCHLORIDE
     Indication: Painful ejaculation
  17. MIANSERIN [Interacting]
     Active Substance: MIANSERIN
     Indication: Depression
     Dosage: 30 MILLIGRAM, ONCE A DAY
     Route: 048
  18. MIANSERIN [Interacting]
     Active Substance: MIANSERIN
     Indication: Insomnia
  19. MIANSERIN [Interacting]
     Active Substance: MIANSERIN
     Indication: Anxiety
  20. METAMIZOLE [Suspect]
     Active Substance: METAMIZOLE
     Indication: Pain
     Dosage: UNK
     Route: 065
  21. METAMIZOLE [Suspect]
     Active Substance: METAMIZOLE
     Indication: Painful ejaculation
  22. MAGNESIUM SULFATE [Suspect]
     Active Substance: MAGNESIUM SULFATE\MAGNESIUM SULFATE HEPTAHYDRATE
     Indication: Painful ejaculation
     Dosage: UNK, BDF
     Route: 065
  23. MAGNESIUM SULFATE [Suspect]
     Active Substance: MAGNESIUM SULFATE\MAGNESIUM SULFATE HEPTAHYDRATE
     Indication: Pain
  24. MELATONIN [Concomitant]
     Active Substance: MELATONIN
     Indication: Depression
     Dosage: 2 MILLIGRAM
     Route: 065
  25. MELATONIN [Concomitant]
     Active Substance: MELATONIN
     Indication: Insomnia
  26. VALPROIC ACID [Suspect]
     Active Substance: VALPROIC ACID
     Indication: Pain
     Dosage: UNK
     Route: 042
  27. VALPROIC ACID [Suspect]
     Active Substance: VALPROIC ACID
     Indication: Painful ejaculation
  28. VORTIOXETINE [Concomitant]
     Active Substance: VORTIOXETINE HYDROBROMIDE
     Indication: Depression
     Dosage: 10 MILLIGRAM
     Route: 065

REACTIONS (17)
  - Anxiety [Unknown]
  - Burning sensation [Not Recovered/Not Resolved]
  - Condition aggravated [Recovering/Resolving]
  - Drug-disease interaction [Recovered/Resolved with Sequelae]
  - Groin pain [Not Recovered/Not Resolved]
  - Painful ejaculation [Recovered/Resolved with Sequelae]
  - Perineal pain [Recovered/Resolved with Sequelae]
  - Pain [Recovered/Resolved]
  - Therapy partial responder [Unknown]
  - Drug interaction [Recovered/Resolved]
  - Drug ineffective [Unknown]
  - Drug ineffective for unapproved indication [Recovered/Resolved]
  - Medication error [Unknown]
  - Off label use [Unknown]
  - Product prescribing error [Unknown]
  - Product use in unapproved indication [Recovered/Resolved]
  - Therapeutic product effect incomplete [Unknown]
